FAERS Safety Report 6794440-3 (Version None)
Quarter: 2010Q2

REPORT INFORMATION
  Report Type: 
  Country: None (occurrence: None)
  Receive Date: 20100625
  Receipt Date: 20100614
  Transmission Date: 20101027
  Serious: Yes (Hospitalization)
  Sender: FDA-Public Use
  Company Number: US-ELI_LILLY_AND_COMPANY-US201006004317

PATIENT
  Sex: Male

DRUGS (10)
  1. FORTEO [Suspect]
     Indication: OSTEOPOROSIS
     Dosage: 20 UG, DAILY (1/D)
  2. FORADIL [Concomitant]
  3. PRAVASTATIN [Concomitant]
  4. BUMETANIDE [Concomitant]
  5. TORSEMIDE [Concomitant]
  6. PREDNISONE [Concomitant]
  7. OSCAL [Concomitant]
  8. METOPROLOL [Concomitant]
  9. MULTI-VIT [Concomitant]
  10. DOXYCYCLA [Concomitant]

REACTIONS (2)
  - CELLULITIS [None]
  - OEDEMA PERIPHERAL [None]
